FAERS Safety Report 7552897-4 (Version None)
Quarter: 2011Q2

REPORT INFORMATION
  Report Type: 
  Country: None (occurrence: None)
  Receive Date: 20110616
  Receipt Date: 20110204
  Transmission Date: 20111010
  Serious: No
  Sender: FDA-Public Use
  Company Number: US-ASTRAZENECA-2011SE06913

PATIENT
  Sex: Female

DRUGS (2)
  1. FASLODEX [Suspect]
     Indication: BREAST CANCER
     Route: 030
  2. FASLODEX [Suspect]
     Route: 030
     Dates: start: 20101201

REACTIONS (4)
  - HEADACHE [None]
  - HEART RATE INCREASED [None]
  - NAUSEA [None]
  - BLOOD PRESSURE FLUCTUATION [None]
